FAERS Safety Report 7197084-7 (Version None)
Quarter: 2010Q4

REPORT INFORMATION
  Report Type: 
  Country: None (occurrence: None)
  Receive Date: 20101224
  Receipt Date: 20101221
  Transmission Date: 20110411
  Serious: Yes (Hospitalization, Other)
  Sender: FDA-Public Use
  Company Number: US-BRISTOL-MYERS SQUIBB COMPANY-15453368

PATIENT
  Age: 75 Year
  Sex: Male
  Weight: 103 kg

DRUGS (10)
  1. COUMADIN [Suspect]
     Dosage: 12.5 MG TWO DAYS PER WEEK
  2. ALLOPURINOL [Concomitant]
  3. AVODART [Concomitant]
     Dosage: RECENTLY REPLACED WITH JALYN
  4. BISOPROLOL [Concomitant]
  5. BROMOCRIPTINE [Concomitant]
  6. FOLIC ACID [Concomitant]
  7. LANOXIN [Concomitant]
  8. LASIX [Concomitant]
  9. LIPITOR [Concomitant]
  10. TERAZOSIN HCL [Concomitant]

REACTIONS (2)
  - DIVERTICULITIS [None]
  - HAEMORRHAGE [None]
